FAERS Safety Report 6689036-8 (Version None)
Quarter: 2010Q2

REPORT INFORMATION
  Report Type: 
  Country: None (occurrence: None)
  Receive Date: 20100420
  Receipt Date: 20100413
  Transmission Date: 20101027
  Serious: Yes (Hospitalization, Other)
  Sender: FDA-Public Use
  Company Number: PHHO2010US05849

PATIENT
  Sex: Male

DRUGS (3)
  1. CYCLOSPORINE [Suspect]
     Indication: RENAL TRANSPLANT
     Dosage: 500 MG DAILY
     Route: 048
     Dates: start: 20050705
  2. CELLCEPT [Suspect]
     Indication: RENAL TRANSPLANT
     Dosage: 1000 MG DAILY
     Route: 048
     Dates: start: 20050706
  3. PREDNISONE TAB [Suspect]
     Indication: RENAL TRANSPLANT
     Dosage: 30 MG DAILY
     Route: 048
     Dates: start: 20050710

REACTIONS (16)
  - ABDOMINAL CAVITY DRAINAGE [None]
  - ABDOMINAL DISTENSION [None]
  - BACTERIAL INFECTION [None]
  - BLOOD CREATININE INCREASED [None]
  - EXPLORATIVE LAPAROTOMY [None]
  - INCISION SITE INFECTION [None]
  - INCISION SITE PAIN [None]
  - PERINEPHRIC COLLECTION [None]
  - PERIRENAL HAEMATOMA [None]
  - PURULENT DISCHARGE [None]
  - RENAL DISORDER [None]
  - RENAL TUBULAR NECROSIS [None]
  - STAPHYLOCOCCAL INFECTION [None]
  - TRANSPLANT REJECTION [None]
  - UMBILICAL HERNIA [None]
  - UMBILICAL HERNIA REPAIR [None]
